FAERS Safety Report 21761785 (Version 1)
Quarter: 2022Q4

REPORT INFORMATION
  Report Type: Report from Study
  Country: FR (occurrence: FR)
  Receive Date: 20221221
  Receipt Date: 20221221
  Transmission Date: 20230112
  Serious: Yes (Life-Threatening)
  Sender: FDA-Public Use
  Company Number: FR-SA-SAC20220413001541

PATIENT
  Age: 60 Year
  Sex: Female
  Weight: 60.5 kg

DRUGS (5)
  1. ISATUXIMAB [Suspect]
     Active Substance: ISATUXIMAB
     Indication: Minimal residual disease
     Dosage: 580 MG
     Route: 042
     Dates: start: 20220401, end: 20220401
  2. DEXAMETHASONE [Suspect]
     Active Substance: DEXAMETHASONE
     Indication: Minimal residual disease
     Dosage: 40 MG
     Route: 048
     Dates: start: 20220401, end: 20220401
  3. DEXAMETHASONE [Suspect]
     Active Substance: DEXAMETHASONE
     Dosage: 40 MG
     Route: 048
     Dates: start: 20220408, end: 20220408
  4. LENALIDOMIDE [Suspect]
     Active Substance: LENALIDOMIDE
     Indication: Minimal residual disease
     Dosage: 25 MG
     Route: 048
     Dates: start: 20220401, end: 20220401
  5. CARFILZOMIB [Suspect]
     Active Substance: CARFILZOMIB
     Indication: Minimal residual disease
     Dosage: 33 MG
     Route: 042
     Dates: start: 20220401, end: 20220401

REACTIONS (1)
  - Acute pulmonary oedema [Recovered/Resolved]

NARRATIVE: CASE EVENT DATE: 20220409
